FAERS Safety Report 21183806 (Version 3)
Quarter: 2022Q4

REPORT INFORMATION
  Report Type: Report from Study
  Country: CA (occurrence: CA)
  Receive Date: 20220808
  Receipt Date: 20221102
  Transmission Date: 20230113
  Serious: Yes (Other)
  Sender: FDA-Public Use
  Company Number: CA-JNJFOC-20220245341

PATIENT
  Age: 15 Year
  Sex: Male
  Weight: 67 kg

DRUGS (2)
  1. REMICADE [Suspect]
     Active Substance: INFLIXIMAB
     Indication: Crohn^s disease
     Dosage: ON 17-FEB-2022, THE PATIENT RECEIVED 91TH DOSE OF REMICADE WITH 700 MG?ALSO RECEIVED INFUSION ON 20-
     Route: 042
     Dates: start: 20060120
  2. REMICADE [Suspect]
     Active Substance: INFLIXIMAB
     Dosage: ON 27-OCT-2022, THE PATIENT RECEIVED 97TH DOSE OF REMICADE WITH 700 MG AND PARTIAL HARVEY-BRADSHAW C
     Route: 042

REACTIONS (8)
  - Haematochezia [Recovering/Resolving]
  - Scab [Not Recovered/Not Resolved]
  - Ear inflammation [Not Recovered/Not Resolved]
  - Frequent bowel movements [Not Recovered/Not Resolved]
  - General physical health deterioration [Not Recovered/Not Resolved]
  - Abdominal pain [Not Recovered/Not Resolved]
  - Diarrhoea [Not Recovered/Not Resolved]
  - Off label use [Unknown]

NARRATIVE: CASE EVENT DATE: 20060120
